FAERS Safety Report 5060202-0 (Version None)
Quarter: 2006Q3

REPORT INFORMATION
  Report Type: 
  Country: None (occurrence: None)
  Receive Date: 20060720
  Receipt Date: 20060710
  Transmission Date: 20061208
  Serious: Yes (Death, Hospitalization, Other)
  Sender: FDA-Public Use
  Company Number: 2006-05-0380

PATIENT
  Age: 70 Year
  Sex: Male

DRUGS (4)
  1. TEMODAL [Suspect]
     Indication: GLIOBLASTOMA
     Dosage: 75 MG/M2 ORAL
     Route: 048
  2. RADIATION THERAPY (LIKE TEMODAR) [Suspect]
     Indication: GLIOBLASTOMA
     Dosage: 60 GRAYS/1.8 X-RAY THERAPY
  3. LACTULOSE [Concomitant]
  4. MEDROL [Concomitant]

REACTIONS (5)
  - CYTOLYTIC HEPATITIS [None]
  - DRUG TOXICITY [None]
  - DYSARTHRIA [None]
  - HEMIPARESIS [None]
  - HEPATITIS TOXIC [None]
